FAERS Safety Report 6941113-X (Version None)
Quarter: 2010Q3

REPORT INFORMATION
  Report Type: 
  Country: None (occurrence: None)
  Receive Date: 20100824
  Receipt Date: 20100824
  Transmission Date: 20110219
  Serious: Yes (Life-Threatening, Hospitalization, Disabling, Other)
  Sender: FDA-Public Use
  Company Number: None

PATIENT
  Age: 40 Year
  Sex: Male
  Weight: 81.6475 kg

DRUGS (1)
  1. ACCUTANE [Suspect]
     Indication: ACNE
     Dosage: 2 PER DAY
     Dates: start: 19850101, end: 19851029

REACTIONS (6)
  - DRUG EFFECT DECREASED [None]
  - FACIAL PAIN [None]
  - HEADACHE [None]
  - IMPAIRED WORK ABILITY [None]
  - MIGRAINE [None]
  - SUICIDE ATTEMPT [None]
